FAERS Safety Report 18192208 (Version 1)
Quarter: 2020Q3

REPORT INFORMATION
  Report Type: Spontaneous
  Country: US (occurrence: US)
  Receive Date: 20200825
  Receipt Date: 20200825
  Transmission Date: 20201103
  Serious: Yes (Other)
  Sender: FDA-Public Use
  Company Number: None

PATIENT
  Age: 45 Year
  Sex: Female
  Weight: 63 kg

DRUGS (1)
  1. ICY HOT MEDICATED NO MESS APPLICATOR [Suspect]
     Active Substance: MENTHOL
     Indication: PAIN
     Dosage: ?          QUANTITY:1 ROLL ON;?
     Route: 061

REACTIONS (2)
  - Application site pain [None]
  - Application site burn [None]

NARRATIVE: CASE EVENT DATE: 20200824
